FAERS Safety Report 6548166-1 (Version None)
Quarter: 2010Q1

REPORT INFORMATION
  Report Type: 
  Country: None (occurrence: None)
  Receive Date: 20100124
  Receipt Date: 20090204
  Transmission Date: 20100710
  Serious: No
  Sender: FDA-Public Use
  Company Number: US-ALLERGAN-0901381US

PATIENT
  Age: 91 Year
  Sex: Male

DRUGS (2)
  1. RESTASIS [Suspect]
     Indication: VISION BLURRED
     Route: 047
  2. RESTASIS [Suspect]
     Indication: DRY EYE

REACTIONS (1)
  - DRUG INEFFECTIVE [None]
